FAERS Safety Report 25442749 (Version 1)
Quarter: 2025Q2

REPORT INFORMATION
  Report Type: Spontaneous
  Country: US (occurrence: US)
  Receive Date: 20250617
  Receipt Date: 20250617
  Transmission Date: 20250717
  Serious: No
  Sender: CSL BEHRING
  Company Number: US-BEH-2025208641

PATIENT
  Age: 35 Year
  Sex: Female

DRUGS (33)
  1. HIZENTRA [Suspect]
     Active Substance: HUMAN IMMUNOGLOBULIN G
     Indication: Immunodeficiency common variable
     Dosage: 20 G, QW
     Route: 058
     Dates: start: 20250603
  2. AUSTEDO [Concomitant]
     Active Substance: DEUTETRABENAZINE
  3. CHANTIX [Concomitant]
     Active Substance: VARENICLINE TARTRATE
  4. LYBALVI [Concomitant]
     Active Substance: OLANZAPINE\SAMIDORPHAN L-MALATE
  5. ATORVASTATIN [Concomitant]
     Active Substance: ATORVASTATIN
  6. BACLOFEN [Concomitant]
     Active Substance: BACLOFEN
  7. BENZTROPINE [Concomitant]
     Active Substance: BENZTROPINE
  8. BIOTIN [Concomitant]
     Active Substance: BIOTIN
  9. BUSPIRONE HCL [Concomitant]
     Active Substance: BUSPIRONE HYDROCHLORIDE
  10. CRANBERRY [Concomitant]
     Active Substance: CRANBERRY
  11. DIFLUCAN [Concomitant]
     Active Substance: FLUCONAZOLE
  12. GABAPENTIN [Concomitant]
     Active Substance: GABAPENTIN
  13. HYDROXYZINE [Concomitant]
     Active Substance: HYDROXYZINE HYDROCHLORIDE
  14. IBUPROFEN [Concomitant]
     Active Substance: IBUPROFEN
  15. IRON [Concomitant]
     Active Substance: IRON
  16. KLONOPIN [Concomitant]
     Active Substance: CLONAZEPAM
  17. LAMICTAL [Concomitant]
     Active Substance: LAMOTRIGINE
  18. METFORMIN HYDROCHLORIDE [Concomitant]
     Active Substance: METFORMIN HYDROCHLORIDE
  19. MUCINEX [Concomitant]
     Active Substance: GUAIFENESIN
  20. ONDANSETRON [Concomitant]
     Active Substance: ONDANSETRON
  21. PEPCID [Concomitant]
     Active Substance: FAMOTIDINE
  22. POTASSIUM CHLORIDE [Concomitant]
     Active Substance: POTASSIUM CHLORIDE
  23. PRAZOSIN HYDROCHLORIDE [Concomitant]
     Active Substance: PRAZOSIN HYDROCHLORIDE
  24. PROPRANOLOL HYDROCHLORIDE [Concomitant]
     Active Substance: PROPRANOLOL HYDROCHLORIDE
  25. SAPHRIS [Concomitant]
     Active Substance: ASENAPINE MALEATE
  26. SEROQUEL XR [Concomitant]
     Active Substance: QUETIAPINE FUMARATE
  27. STOOL SOFTENER (DOCUSATE) [Concomitant]
     Active Substance: DOCUSATE
  28. TRULICITY [Concomitant]
     Active Substance: DULAGLUTIDE
  29. TYLENOL [Concomitant]
     Active Substance: ACETAMINOPHEN
  30. VITAMIN C [Concomitant]
     Active Substance: ASCORBIC ACID
  31. VITAMIN D3 [Concomitant]
     Active Substance: CHOLECALCIFEROL
  32. ZINC [Concomitant]
     Active Substance: ZINC
  33. ZYPREXA [Concomitant]
     Active Substance: OLANZAPINE

REACTIONS (6)
  - Hot flush [Not Recovered/Not Resolved]
  - Nasopharyngitis [Not Recovered/Not Resolved]
  - Fatigue [Not Recovered/Not Resolved]
  - Influenza like illness [Not Recovered/Not Resolved]
  - Neck pain [Not Recovered/Not Resolved]
  - Cluster headache [Not Recovered/Not Resolved]

NARRATIVE: CASE EVENT DATE: 20250603
